FAERS Safety Report 10247990 (Version 1)
Quarter: 2014Q2

REPORT INFORMATION
  Report Type: Spontaneous
  Country: US (occurrence: US)
  Receive Date: 20140619
  Receipt Date: 20140619
  Transmission Date: 20141212
  Serious: Yes (Other)
  Sender: FDA-Public Use
  Company Number: US-BAXTER-2014BAX030858

PATIENT
  Age: 57 Year
  Sex: Female

DRUGS (3)
  1. GAMMAGARD LIQUID [Suspect]
     Indication: BK VIRUS INFECTION
     Dosage: 2G/KG
     Route: 042
  2. TACROLIMUS [Suspect]
     Indication: RENAL TRANSPLANT
     Route: 048
  3. MYCOPHENOLATE MOFETIL [Suspect]
     Indication: RENAL TRANSPLANT
     Route: 048

REACTIONS (4)
  - Polyomavirus test positive [Recovering/Resolving]
  - Transplant dysfunction [Unknown]
  - Blood creatinine increased [Recovering/Resolving]
  - Polyomavirus-associated nephropathy [Unknown]
